FAERS Safety Report 7469344-3 (Version None)
Quarter: 2011Q2

REPORT INFORMATION
  Report Type: 
  Country: None (occurrence: None)
  Receive Date: 20110429
  Receipt Date: 20110421
  Transmission Date: 20111010
  Serious: Yes (Other)
  Sender: FDA-Public Use
  Company Number: USA/11/0018100

PATIENT
  Age: 31 Year
  Sex: Female

DRUGS (2)
  1. LAMOTRIGINE [Suspect]
     Indication: MAJOR DEPRESSION
     Dosage: 50, 37.5 MG, 1 D
     Dates: start: 20100601
  2. DULOXETIME HYDROCHLORIDE [Suspect]
     Indication: MAJOR DEPRESSION
     Dosage: 60 MG, 1 D
     Dates: start: 20090101

REACTIONS (6)
  - INJURY [None]
  - INSOMNIA [None]
  - SPEECH DISORDER [None]
  - DISTURBANCE IN ATTENTION [None]
  - PSYCHOMOTOR HYPERACTIVITY [None]
  - HYPOMANIA [None]
